FAERS Safety Report 11829182 (Version 2)
Quarter: 2016Q1

REPORT INFORMATION
  Report Type: Spontaneous
  Country: US (occurrence: US)
  Receive Date: 20151211
  Receipt Date: 20160208
  Transmission Date: 20160525
  Serious: Yes (Death, Other)
  Sender: FDA-Public Use
  Company Number: US-PFIZER INC-2015436439

PATIENT
  Age: 25 Year
  Sex: Female

DRUGS (1)
  1. LIDOCAINE/TETRACAINE [Suspect]
     Active Substance: LIDOCAINE\TETRACAINE
     Indication: PAIN
     Dosage: 6% LIDOCAINE/6% TETRACAINE
     Route: 061

REACTIONS (3)
  - Coma [Unknown]
  - Seizure [Unknown]
  - Toxicity to various agents [Fatal]
